FAERS Safety Report 22607226 (Version 3)
Quarter: 2025Q4

REPORT INFORMATION
  Report Type: Spontaneous
  Country: JP (occurrence: JP)
  Receive Date: 20230615
  Receipt Date: 20251216
  Transmission Date: 20260117
  Serious: Yes (Hospitalization, Disabling, Other)
  Sender: NOVARTIS
  Company Number: JP-002147023-NVSJ2023JP009494

PATIENT
  Age: 55 Year
  Sex: Male
  Weight: 42 kg

DRUGS (10)
  1. ELTROMBOPAG OLAMINE [Suspect]
     Active Substance: ELTROMBOPAG OLAMINE
     Indication: Immune thrombocytopenia
     Dosage: 12.5 MG
     Route: 048
     Dates: start: 20210331, end: 20220419
  2. ELTROMBOPAG OLAMINE [Suspect]
     Active Substance: ELTROMBOPAG OLAMINE
     Dosage: 25 MG
     Route: 048
     Dates: start: 20220420, end: 20220823
  3. ELTROMBOPAG OLAMINE [Suspect]
     Active Substance: ELTROMBOPAG OLAMINE
     Dosage: 37.5 MG
     Route: 048
     Dates: start: 20220824, end: 20221101
  4. ELTROMBOPAG OLAMINE [Suspect]
     Active Substance: ELTROMBOPAG OLAMINE
     Dosage: 50 MG, QD
     Route: 048
     Dates: start: 20221102, end: 20221204
  5. PREDONINE [Concomitant]
     Active Substance: PREDNISOLONE
     Indication: Immune thrombocytopenia
     Dosage: 5 MG
     Route: 048
     Dates: start: 200103, end: 20221204
  6. PREDONINE [Concomitant]
     Active Substance: PREDNISOLONE
     Dosage: TAPERING
     Route: 048
     Dates: start: 20221205
  7. PREDONINE [Concomitant]
     Active Substance: PREDNISOLONE
     Dosage: 10 MG
     Route: 048
  8. CALONAL [Concomitant]
     Active Substance: ACETAMINOPHEN
     Indication: Pain
     Dosage: 500 MG
     Route: 048
     Dates: start: 20220425, end: 20220429
  9. LANSOPRAZOLE [Concomitant]
     Active Substance: LANSOPRAZOLE
     Indication: Abdominal pain upper
     Dosage: 15 MG
     Route: 048
     Dates: start: 20220112, end: 20221025
  10. VONOPRAZAN FUMARATE [Concomitant]
     Active Substance: VONOPRAZAN FUMARATE
     Indication: Gastritis erosive
     Dosage: UNK
     Route: 065
     Dates: start: 20221026

REACTIONS (4)
  - Glomerulonephritis rapidly progressive [Recovered/Resolved with Sequelae]
  - Haematuria [Unknown]
  - Proteinuria [Unknown]
  - Thrombotic microangiopathy [Unknown]

NARRATIVE: CASE EVENT DATE: 20220928
